FAERS Safety Report 9863811 (Version 2)
Quarter: 2014Q1

REPORT INFORMATION
  Report Type: Report from Study
  Country: US (occurrence: US)
  Receive Date: 20140203
  Receipt Date: 20140225
  Transmission Date: 20141002
  Serious: Yes (Hospitalization)
  Sender: FDA-Public Use
  Company Number: US-PFIZER INC-2014020011

PATIENT
  Age: 26 Year
  Sex: Female
  Weight: 46.71 kg

DRUGS (8)
  1. SUNITINIB MALATE [Suspect]
     Indication: NEUROFIBROMATOSIS
     Dosage: 50 MG, DAILY
     Route: 048
     Dates: start: 20130321, end: 20140105
  2. DILAUDID [Concomitant]
     Indication: PAIN
     Dosage: 2 MG, EVERY 3 HOURS AS NEEDED
     Dates: start: 20120604
  3. MS-CONTIN [Concomitant]
     Indication: PAIN
     Dosage: 30 MG, 1X/DAY
     Dates: start: 20120604
  4. MS-CONTIN [Concomitant]
     Dosage: 60 MG, 1X/DAY
     Dates: start: 20120604
  5. RETIN A [Concomitant]
     Indication: ACNE
     Dosage: 0.025 %, 1X/DAY AT BEDTIME
     Dates: start: 20111216
  6. ONDANSETRON [Concomitant]
     Indication: NAUSEA
     Dosage: 8 MG, 2X/DAY
     Dates: start: 20120604
  7. ONDANSETRON [Concomitant]
     Indication: VOMITING
  8. TOPIRAMATE [Concomitant]
     Indication: EPILEPSY
     Dosage: 25 MG, 1X/DAY
     Dates: start: 20110701

REACTIONS (2)
  - Wound dehiscence [Recovering/Resolving]
  - Wound infection [Recovered/Resolved]
